FAERS Safety Report 17719945 (Version 3)
Quarter: 2020Q2

REPORT INFORMATION
  Report Type: Report from Study
  Country: ES (occurrence: ES)
  Receive Date: 20200428
  Receipt Date: 20200507
  Transmission Date: 20200714
  Serious: Yes (Death, Hospitalization, Other)
  Sender: FDA-Public Use
  Company Number: ES-BRISTOL-MYERS SQUIBB COMPANY-BMS-2020-031304

PATIENT
  Age: 33 Year
  Sex: Female
  Weight: 50 kg

DRUGS (4)
  1. SALBUTAMOL [Concomitant]
     Active Substance: ALBUTEROL
     Indication: DYSPNOEA
     Dosage: UNK
     Dates: start: 20200327
  2. SUNITINIB MALATE. [Suspect]
     Active Substance: SUNITINIB MALATE
     Indication: CHONDROSARCOMA
     Dosage: 25 MILLIGRAM, QD
     Route: 065
     Dates: start: 20200316
  3. NIVOLUMAB [Suspect]
     Active Substance: NIVOLUMAB
     Indication: CHONDROSARCOMA
     Dosage: UNK
     Route: 065
     Dates: start: 20200401
  4. METAMIZOL SODICO [METAMIZOLE SODIUM MONOHYDRATE] [Concomitant]
     Indication: PAIN
     Dosage: UNK
     Route: 048
     Dates: start: 2020

REACTIONS (2)
  - Respiratory tract infection [Fatal]
  - Pulmonary embolism [Not Recovered/Not Resolved]

NARRATIVE: CASE EVENT DATE: 20200410
